APPROVED DRUG PRODUCT: LORAZEPAM
Active Ingredient: LORAZEPAM
Strength: 1MG
Dosage Form/Route: TABLET;ORAL
Application: A071246 | Product #001
Applicant: SUPERPHARM CORP
Approved: Feb 9, 1987 | RLD: No | RS: No | Type: DISCN